FAERS Safety Report 7378208-5 (Version None)
Quarter: 2011Q1

REPORT INFORMATION
  Report Type: 
  Country: None (occurrence: None)
  Receive Date: 20110328
  Receipt Date: 20110307
  Transmission Date: 20110831
  Serious: Yes (Other)
  Sender: FDA-Public Use
  Company Number: A0917592A

PATIENT
  Sex: Female

DRUGS (2)
  1. XELODA [Concomitant]
  2. TYKERB [Suspect]
     Dosage: 1000MG PER DAY
     Route: 065
     Dates: start: 20110228

REACTIONS (6)
  - BRAIN NEOPLASM [None]
  - MOUTH ULCERATION [None]
  - TRANSIENT ISCHAEMIC ATTACK [None]
  - MALAISE [None]
  - DIARRHOEA [None]
  - FATIGUE [None]
